FAERS Safety Report 20151888 (Version 1)
Quarter: 2021Q4

REPORT INFORMATION
  Report Type: Spontaneous
  Country: US (occurrence: US)
  Receive Date: 20211206
  Receipt Date: 20211206
  Transmission Date: 20220303
  Serious: Yes (Other)
  Sender: FDA-Public Use
  Company Number: US-GLAXOSMITHKLINE- US2021GSK247959

PATIENT
  Sex: Male

DRUGS (30)
  1. ZANTAC [Suspect]
     Active Substance: RANITIDINE HYDROCHLORIDE
     Indication: Abdominal discomfort
     Dosage: 75 MG, QD
     Route: 065
     Dates: start: 200107, end: 201906
  2. ZANTAC [Suspect]
     Active Substance: RANITIDINE HYDROCHLORIDE
     Indication: Abdominal pain
     Dosage: 75 MG, X2 DAILY
     Route: 065
     Dates: start: 200107, end: 201906
  3. ZANTAC [Suspect]
     Active Substance: RANITIDINE HYDROCHLORIDE
     Indication: Abdominal distension
  4. ZANTAC [Suspect]
     Active Substance: RANITIDINE HYDROCHLORIDE
     Indication: Abdominal pain upper
  5. ZANTAC [Suspect]
     Active Substance: RANITIDINE HYDROCHLORIDE
     Indication: Haematochezia
  6. ZANTAC [Suspect]
     Active Substance: RANITIDINE HYDROCHLORIDE
     Indication: Abdominal discomfort
     Dosage: 75 MG, QD
     Route: 065
     Dates: start: 200107, end: 201906
  7. ZANTAC [Suspect]
     Active Substance: RANITIDINE HYDROCHLORIDE
     Indication: Abdominal pain
     Dosage: 75 MG, X2 DAILY
     Route: 065
     Dates: start: 200107, end: 201906
  8. ZANTAC [Suspect]
     Active Substance: RANITIDINE HYDROCHLORIDE
     Indication: Abdominal distension
  9. ZANTAC [Suspect]
     Active Substance: RANITIDINE HYDROCHLORIDE
     Indication: Abdominal pain upper
  10. ZANTAC [Suspect]
     Active Substance: RANITIDINE HYDROCHLORIDE
     Indication: Haematochezia
  11. RANITIDINE [Suspect]
     Active Substance: RANITIDINE
     Indication: Abdominal discomfort
     Dosage: 75 MG, QD
     Route: 065
     Dates: start: 201906, end: 202107
  12. RANITIDINE [Suspect]
     Active Substance: RANITIDINE
     Indication: Abdominal pain
  13. RANITIDINE [Suspect]
     Active Substance: RANITIDINE
     Indication: Abdominal distension
  14. RANITIDINE [Suspect]
     Active Substance: RANITIDINE
     Indication: Abdominal pain upper
  15. RANITIDINE [Suspect]
     Active Substance: RANITIDINE
     Indication: Haematochezia
  16. RANITIDINE [Suspect]
     Active Substance: RANITIDINE
     Indication: Abdominal discomfort
     Dosage: 75 MG, QD
     Route: 065
     Dates: start: 201906, end: 202107
  17. RANITIDINE [Suspect]
     Active Substance: RANITIDINE
     Indication: Abdominal pain
  18. RANITIDINE [Suspect]
     Active Substance: RANITIDINE
     Indication: Abdominal distension
  19. RANITIDINE [Suspect]
     Active Substance: RANITIDINE
     Indication: Abdominal pain upper
  20. RANITIDINE [Suspect]
     Active Substance: RANITIDINE
     Indication: Haematochezia
  21. RANITIDINE [Suspect]
     Active Substance: RANITIDINE
     Indication: Abdominal discomfort
     Dosage: 75 MG, QD
     Route: 065
     Dates: start: 201906, end: 202107
  22. RANITIDINE [Suspect]
     Active Substance: RANITIDINE
     Indication: Abdominal pain
  23. RANITIDINE [Suspect]
     Active Substance: RANITIDINE
     Indication: Abdominal distension
  24. RANITIDINE [Suspect]
     Active Substance: RANITIDINE
     Indication: Abdominal pain upper
  25. RANITIDINE [Suspect]
     Active Substance: RANITIDINE
     Indication: Haematochezia
  26. RANITIDINE [Suspect]
     Active Substance: RANITIDINE
     Indication: Abdominal discomfort
     Dosage: 75 MG, QD
     Route: 065
     Dates: start: 201906, end: 202107
  27. RANITIDINE [Suspect]
     Active Substance: RANITIDINE
     Indication: Abdominal pain
  28. RANITIDINE [Suspect]
     Active Substance: RANITIDINE
     Indication: Abdominal distension
  29. RANITIDINE [Suspect]
     Active Substance: RANITIDINE
     Indication: Abdominal pain upper
  30. RANITIDINE [Suspect]
     Active Substance: RANITIDINE
     Indication: Haematochezia

REACTIONS (1)
  - Prostate cancer [Unknown]
